FAERS Safety Report 7849304-0 (Version None)
Quarter: 2011Q4

REPORT INFORMATION
  Report Type: 
  Country: None (occurrence: None)
  Receive Date: 20111021
  Receipt Date: 20111007
  Transmission Date: 20120403
  Serious: Yes (Other)
  Sender: FDA-Public Use
  Company Number: CRC-11-251

PATIENT
  Sex: Female

DRUGS (1)
  1. GABAPENTIN [Suspect]

REACTIONS (9)
  - AMNESIA [None]
  - AFFECTIVE DISORDER [None]
  - HAIR GROWTH ABNORMAL [None]
  - TRANSIENT ISCHAEMIC ATTACK [None]
  - UNEVALUABLE EVENT [None]
  - COGNITIVE DISORDER [None]
  - ABNORMAL BEHAVIOUR [None]
  - SPEECH DISORDER [None]
  - STEREOTYPY [None]
